FAERS Safety Report 10249904 (Version 3)
Quarter: 2014Q3

REPORT INFORMATION
  Report Type: Spontaneous
  Country: US (occurrence: US)
  Receive Date: 20140620
  Receipt Date: 20140708
  Transmission Date: 20150326
  Serious: Yes (Life-Threatening, Hospitalization, Other)
  Sender: FDA-Public Use
  Company Number: US-MYLANLABS-2014S1014133

PATIENT
  Age: 24 Year
  Sex: Male
  Weight: 58.96 kg

DRUGS (8)
  1. COLCHICINE. [Suspect]
     Active Substance: COLCHICINE
  2. PALIPERIDONE [Concomitant]
     Active Substance: PALIPERIDONE
     Dosage: INVEGA
  3. DEPAKOTE [Concomitant]
     Active Substance: DIVALPROEX SODIUM
     Dosage: ER, 500MG QHS
  4. COGENTIN [Concomitant]
     Active Substance: BENZTROPINE MESYLATE
  5. LEXAPRO [Concomitant]
     Active Substance: ESCITALOPRAM OXALATE
  6. CLOZAPINE TABLETS [Suspect]
     Active Substance: CLOZAPINE
     Indication: SCHIZOAFFECTIVE DISORDER
     Route: 048
     Dates: start: 20140521, end: 20140617
  7. CLOZAPINE TABLETS [Suspect]
     Active Substance: CLOZAPINE
     Indication: SCHIZOAFFECTIVE DISORDER BIPOLAR TYPE
     Route: 048
     Dates: start: 20140521, end: 20140617
  8. CLOZAPINE TABLETS [Suspect]
     Active Substance: CLOZAPINE
     Indication: MANIA
     Route: 048
     Dates: start: 20140521, end: 20140617

REACTIONS (23)
  - Pericarditis [Recovering/Resolving]
  - Renal failure acute [Recovered/Resolved]
  - Neuroleptic malignant syndrome [Recovering/Resolving]
  - Pericardial effusion [Recovering/Resolving]
  - Dehydration [Recovered/Resolved]
  - Vomiting [Recovered/Resolved]
  - Hypereosinophilic syndrome [Recovering/Resolving]
  - Presyncope [Recovered/Resolved]
  - Pneumonia [Recovered/Resolved]
  - Bronchitis [Recovered/Resolved]
  - Diarrhoea [Recovered/Resolved]
  - Nausea [Recovered/Resolved]
  - Dizziness [Recovering/Resolving]
  - Pyrexia [Recovered/Resolved]
  - Hypophagia [Recovered/Resolved]
  - Delirium [Recovered/Resolved]
  - Myocarditis [Recovering/Resolving]
  - Adverse drug reaction [Recovering/Resolving]
  - Fatigue [Recovered/Resolved]
  - Pulmonary embolism [Recovering/Resolving]
  - Abdominal discomfort [Recovered/Resolved]
  - Musculoskeletal discomfort [Recovered/Resolved]
  - Hypotension [Recovered/Resolved]

NARRATIVE: CASE EVENT DATE: 20140528
